FAERS Safety Report 11654961 (Version 1)
Quarter: 2015Q4

REPORT INFORMATION
  Report Type: Spontaneous
  Country: KR (occurrence: KR)
  Receive Date: 20151023
  Receipt Date: 20151023
  Transmission Date: 20160304
  Serious: Yes (Other)
  Sender: FDA-Public Use
  Company Number: KR-SA-2015SA164109

PATIENT
  Age: 47 Year
  Sex: Female

DRUGS (2)
  1. DOCETAXEL. [Suspect]
     Active Substance: DOCETAXEL
     Indication: METASTASES TO MENINGES
     Dosage: 3 CYCLES FOR 3 MONTHS
     Route: 065
  2. CARBOPLATIN. [Suspect]
     Active Substance: CARBOPLATIN
     Indication: METASTASES TO MENINGES
     Dosage: 3 CYCLES FOR 3 MONTHS
     Route: 065

REACTIONS (1)
  - Cytotoxic oedema [Unknown]
